FAERS Safety Report 13587075 (Version 2)
Quarter: 2017Q3

REPORT INFORMATION
  Report Type: Report from Study
  Country: US (occurrence: US)
  Receive Date: 20170526
  Receipt Date: 20170703
  Transmission Date: 20171127
  Serious: Yes (Death, Life-Threatening, Hospitalization)
  Sender: FDA-Public Use
  Company Number: US-B.I. PHARMACEUTICALS,INC./RIDGEFIELD-2017-BI-029099

PATIENT
  Age: 65 Year
  Sex: Female
  Weight: 59 kg

DRUGS (1)
  1. GILOTRIF [Suspect]
     Active Substance: AFATINIB
     Indication: NON-SMALL CELL LUNG CANCER
     Route: 048
     Dates: start: 20170314, end: 20170421

REACTIONS (8)
  - Respiratory failure [Fatal]
  - Dermatitis acneiform [Recovered/Resolved]
  - Epistaxis [Recovered/Resolved]
  - Diarrhoea [Recovered/Resolved]
  - Diarrhoea [Recovered/Resolved]
  - Diarrhoea [Recovered/Resolved]
  - Diarrhoea [Recovered/Resolved]
  - Fatigue [Recovered/Resolved]

NARRATIVE: CASE EVENT DATE: 20170321
